FAERS Safety Report 4865877-4 (Version None)
Quarter: 2005Q4

REPORT INFORMATION
  Report Type: 
  Country: None (occurrence: None)
  Receive Date: 20051219
  Receipt Date: 20051205
  Transmission Date: 20060501
  Serious: Yes (Other)
  Sender: FDA-Public Use
  Company Number: S05-GER-04484-01

PATIENT
  Age: 57 Year
  Sex: Female

DRUGS (3)
  1. CITALOPRAM HYDROBROMIDE [Suspect]
     Indication: DEPRESSION
     Dosage: 20 MG QD
     Dates: end: 20051020
  2. NEXIUM [Suspect]
     Indication: REFLUX OESOPHAGITIS
     Dosage: 20 MG QD PO
     Route: 048
     Dates: end: 20051020
  3. IBEROGAST [Concomitant]

REACTIONS (2)
  - GRANULOCYTOPENIA [None]
  - LEUKOPENIA [None]
